FAERS Safety Report 12364578 (Version 3)
Quarter: 2016Q2

REPORT INFORMATION
  Report Type: Report from Study
  Country: US (occurrence: US)
  Receive Date: 20160512
  Receipt Date: 20160628
  Transmission Date: 20160815
  Serious: Yes (Hospitalization, Other)
  Sender: FDA-Public Use
  Company Number: US-GILEAD-2016-0213136

PATIENT
  Age: 74 Year
  Sex: Male

DRUGS (2)
  1. RANOLAZINE [Suspect]
     Active Substance: RANOLAZINE
     Indication: ANGINA PECTORIS
     Dosage: 1000 MG, UNK
     Route: 048
  2. RANOLAZINE [Suspect]
     Active Substance: RANOLAZINE
     Dosage: 500 MG, UNK
     Route: 048

REACTIONS (6)
  - Hypoacusis [Unknown]
  - Chest pain [Unknown]
  - Unevaluable event [Unknown]
  - Stent placement [Unknown]
  - Renal impairment [Unknown]
  - Wrong technique in product usage process [Not Recovered/Not Resolved]

NARRATIVE: CASE EVENT DATE: 201601
